FAERS Safety Report 6753512-X (Version None)
Quarter: 2010Q2

REPORT INFORMATION
  Report Type: 
  Country: None (occurrence: None)
  Receive Date: 20100603
  Receipt Date: 20100503
  Transmission Date: 20101027
  Serious: No
  Sender: FDA-Public Use
  Company Number: US-BAYER-201015177BCC

PATIENT
  Age: 26 Year
  Sex: Female
  Weight: 64 kg

DRUGS (1)
  1. ALEVE [Suspect]
     Indication: HEADACHE
     Dosage: TOTAL DAILY DOSE: 1320 MG  UNIT DOSE: 1320 MG
     Route: 048
     Dates: start: 20100503

REACTIONS (1)
  - NO ADVERSE EVENT [None]
